FAERS Safety Report 5390713-X (Version None)
Quarter: 2007Q3

REPORT INFORMATION
  Report Type: 
  Country: None (occurrence: None)
  Receive Date: 20070716
  Receipt Date: 20060605
  Transmission Date: 20080115
  Serious: Yes (Death, Hospitalization)
  Sender: FDA-Public Use
  Company Number: MPS1-10544

PATIENT
  Age: 13 Year
  Sex: Female
  Weight: 20 kg

DRUGS (1)
  1. ALDURAZYME [Suspect]
     Indication: MUCOPOLYSACCHARIDOSIS I
     Dosage: 2000 UNITS QWK; IV
     Route: 042
     Dates: start: 20031027, end: 20060530

REACTIONS (1)
  - MITRAL VALVE REPLACEMENT [None]
